FAERS Safety Report 7689511-3 (Version None)
Quarter: 2011Q3

REPORT INFORMATION
  Report Type: 
  Country: None (occurrence: None)
  Receive Date: 20110817
  Receipt Date: 20110628
  Transmission Date: 20111222
  Serious: No
  Sender: FDA-Public Use
  Company Number: US-TYCO HEALTHCARE/MALLINCKRODT-T201101329

PATIENT
  Sex: Female

DRUGS (4)
  1. FENTANYL-100 [Suspect]
     Indication: BACK PAIN
     Dosage: 100 UG/HR, Q72 HOUR
     Route: 062
     Dates: start: 20110628, end: 20110628
  2. FENTANYL [Concomitant]
     Indication: PAIN IN EXTREMITY
  3. FENTANYL-100 [Suspect]
     Indication: PAIN IN EXTREMITY
  4. FENTANYL [Concomitant]
     Indication: BACK PAIN
     Dosage: 75 UG/HR, Q72 HOUR
     Route: 062
     Dates: end: 20110601

REACTIONS (6)
  - DYSPHONIA [None]
  - IRRITABILITY [None]
  - FEELING COLD [None]
  - NERVOUSNESS [None]
  - AGITATION [None]
  - DIZZINESS [None]
